FAERS Safety Report 22245191 (Version 1)
Quarter: 2023Q2

REPORT INFORMATION
  Report Type: Spontaneous
  Country: US (occurrence: None)
  Receive Date: 20230423
  Receipt Date: 20230423
  Transmission Date: 20230722
  Serious: Yes (Hospitalization, Other)
  Sender: FDA-Public Use
  Company Number: None

PATIENT
  Age: 14 Year
  Sex: Male
  Weight: 33.3 kg

DRUGS (1)
  1. AMANTADINE [Suspect]
     Active Substance: AMANTADINE
     Indication: Off label use
     Dosage: OTHER QUANTITY : 2 CAPSULE(S);?FREQUENCY : TWICE A DAY;?
     Route: 048

REACTIONS (9)
  - Prescribed overdose [None]
  - Tremor [None]
  - Circulatory collapse [None]
  - Seizure [None]
  - Tinnitus [None]
  - Asthenia [None]
  - Insomnia [None]
  - Visual acuity reduced [None]
  - Astigmatism [None]

NARRATIVE: CASE EVENT DATE: 20230115
